FAERS Safety Report 4831719-6 (Version None)
Quarter: 2005Q4

REPORT INFORMATION
  Report Type: 
  Country: None (occurrence: None)
  Receive Date: 20051118
  Receipt Date: 20051109
  Transmission Date: 20060501
  Serious: Yes (Other)
  Sender: FDA-Public Use
  Company Number: PL-AVENTIS-200519916GDDC

PATIENT
  Age: 56 Year
  Sex: Female

DRUGS (7)
  1. GLIMEPIRIDE [Suspect]
     Indication: DIABETES MELLITUS
     Route: 048
     Dates: start: 20051105, end: 20051105
  2. GOPTEN [Concomitant]
     Indication: CONGESTIVE CARDIOMYOPATHY
     Route: 048
     Dates: start: 20000101
  3. GOPTEN [Concomitant]
     Indication: HYPERTENSION
     Route: 048
     Dates: start: 20000101
  4. INDAPAMIDE SR [Concomitant]
     Indication: HYPERTENSION
     Route: 048
     Dates: start: 20000101
  5. STAVERAN [Concomitant]
     Indication: HYPERTENSION
     Route: 048
     Dates: start: 20000101
  6. STAVERAN [Concomitant]
     Indication: MYOCARDIAL ISCHAEMIA
     Route: 048
     Dates: start: 20000101
  7. ENARENAL [Concomitant]
     Indication: HYPERTENSION
     Route: 048
     Dates: start: 20000101

REACTIONS (7)
  - CHEST DISCOMFORT [None]
  - DEPRESSED LEVEL OF CONSCIOUSNESS [None]
  - DYSARTHRIA [None]
  - DYSPNOEA [None]
  - HEAD DISCOMFORT [None]
  - INCORRECT DOSE ADMINISTERED [None]
  - TREMOR [None]
